FAERS Safety Report 9702940 (Version 1)
Quarter: 2013Q4

REPORT INFORMATION
  Report Type: Spontaneous
  Country: US (occurrence: US)
  Receive Date: 20131121
  Receipt Date: 20131121
  Transmission Date: 20140711
  Serious: No
  Sender: FDA-Public Use
  Company Number: US-009507513-1311USA008347

PATIENT
  Age: 68 Year
  Sex: Female

DRUGS (2)
  1. DULERA [Suspect]
     Indication: ASTHMA
     Dosage: 200MCG/5, 2XDAILY
     Route: 055
     Dates: start: 20131114, end: 20131115
  2. CLARITIN [Concomitant]

REACTIONS (4)
  - Feeling jittery [Unknown]
  - Nervousness [Unknown]
  - Cough [Unknown]
  - Peripheral coldness [Unknown]
